FAERS Safety Report 7395259-5 (Version None)
Quarter: 2011Q2

REPORT INFORMATION
  Report Type: 
  Country: None (occurrence: None)
  Receive Date: 20110405
  Receipt Date: 20110322
  Transmission Date: 20111010
  Serious: Yes (Hospitalization)
  Sender: FDA-Public Use
  Company Number: GB-JNJFOC-20110301126

PATIENT
  Age: 69 Year
  Sex: Female
  Weight: 74.4 kg

DRUGS (7)
  1. INFLIXIMAB, RECOMBINANT [Suspect]
     Indication: PSORIASIS
     Route: 042
  2. COZAAR [Concomitant]
  3. ZOPICLONE [Concomitant]
  4. CYCLOSPORINE [Concomitant]
  5. CARDURA [Concomitant]
  6. DILZEM [Concomitant]
  7. LANSOPRAZOLE [Concomitant]

REACTIONS (2)
  - SQUAMOUS CELL CARCINOMA [None]
  - ANAPHYLACTIC SHOCK [None]
